FAERS Safety Report 19722002 (Version 2)
Quarter: 2021Q3

REPORT INFORMATION
  Report Type: Report from Study
  Country: None (occurrence: US)
  Receive Date: 20210818
  Receipt Date: 20210825
  Transmission Date: 20211014
  Serious: Yes (Other)
  Sender: FDA-Public Use
  Company Number: US-ABBVIE-21K-163-3949140-00

PATIENT
  Sex: Female

DRUGS (2)
  1. HUMIRA [Suspect]
     Active Substance: ADALIMUMAB
     Indication: UVEITIS
     Dosage: DAY 8 AND THEREAFTER
     Route: 058
     Dates: start: 20210503
  2. HUMIRA [Suspect]
     Active Substance: ADALIMUMAB
     Indication: UVEITIS
     Dosage: DAY 1?LOADING DOSE
     Route: 058
     Dates: start: 20210426, end: 20210426

REACTIONS (8)
  - Vitreous floaters [Recovered/Resolved]
  - Injection site pain [Not Recovered/Not Resolved]
  - Therapeutic product effect incomplete [Unknown]
  - Eye pain [Not Recovered/Not Resolved]
  - Systemic lupus erythematosus [Unknown]
  - Vision blurred [Unknown]
  - Arthralgia [Recovering/Resolving]
  - Ocular hyperaemia [Unknown]

NARRATIVE: CASE EVENT DATE: 2021
